FAERS Safety Report 4871599-6 (Version None)
Quarter: 2006Q1

REPORT INFORMATION
  Report Type: 
  Country: None (occurrence: None)
  Receive Date: 20060104
  Receipt Date: 20051230
  Transmission Date: 20060701
  Serious: Yes (Hospitalization)
  Sender: FDA-Public Use
  Company Number: IT-AVENTIS-200521437GDDC

PATIENT
  Age: 72 Year
  Sex: Male

DRUGS (5)
  1. KETEK [Suspect]
     Indication: BRONCHITIS ACUTE
     Route: 048
     Dates: start: 20051220, end: 20051221
  2. SPIRIVA [Concomitant]
     Route: 055
  3. TERAPROST [Concomitant]
  4. FORADIL [Concomitant]
  5. MIFLONIDE [Concomitant]

REACTIONS (1)
  - ATRIAL FIBRILLATION [None]
